FAERS Safety Report 13596678 (Version 3)
Quarter: 2019Q2

REPORT INFORMATION
  Report Type: Spontaneous
  Country: US (occurrence: US)
  Receive Date: 20170531
  Receipt Date: 20190617
  Transmission Date: 20190711
  Serious: No
  Sender: FDA-Public Use
  Company Number: US-PFIZER INC-2017234297

PATIENT
  Age: 54 Year
  Sex: Male
  Weight: 151.95 kg

DRUGS (4)
  1. LYRICA [Suspect]
     Active Substance: PREGABALIN
     Indication: DIABETIC NEUROPATHY
     Dosage: 3 HARD CAPSULES, DAILY
  2. LYRICA [Suspect]
     Active Substance: PREGABALIN
     Dosage: 4 HARD CAPSULES, DAILY
  3. LYRICA [Suspect]
     Active Substance: PREGABALIN
     Dosage: 500 MG, 1X/DAY (1 CAP PO 5 X1 DAY)
     Route: 048
     Dates: start: 20180501
  4. LYRICA [Suspect]
     Active Substance: PREGABALIN
     Dosage: 5 HARD CAPSULES, DAILY

REACTIONS (3)
  - Therapeutic product effect incomplete [Unknown]
  - Drug tolerance increased [Unknown]
  - Off label use [Unknown]

NARRATIVE: CASE EVENT DATE: 20180501
